FAERS Safety Report 4764559-7 (Version None)
Quarter: 2005Q3

REPORT INFORMATION
  Report Type: 
  Country: None (occurrence: None)
  Receive Date: 20050906
  Receipt Date: 20050816
  Transmission Date: 20060218
  Serious: Yes (Life-Threatening, Other)
  Sender: FDA-Public Use
  Company Number: US_0508121096

PATIENT
  Age: 11 Year
  Sex: Male

DRUGS (1)
  1. STRATTERA [Suspect]
     Indication: ATTENTION DEFICIT/HYPERACTIVITY DISORDER
     Dosage: 25 MG
     Dates: start: 20050507, end: 20050610

REACTIONS (8)
  - AGGRESSION [None]
  - FEELING ABNORMAL [None]
  - HALLUCINATION, AUDITORY [None]
  - IMPULSIVE BEHAVIOUR [None]
  - INSOMNIA [None]
  - PERSONALITY CHANGE [None]
  - PYROMANIA [None]
  - SUICIDE ATTEMPT [None]
